FAERS Safety Report 5253866-X (Version None)
Quarter: 2007Q1

REPORT INFORMATION
  Report Type: 
  Country: None (occurrence: None)
  Receive Date: 20070227
  Receipt Date: 20070212
  Transmission Date: 20070707
  Serious: Yes (Death, Life-Threatening)
  Sender: FDA-Public Use
  Company Number: 2007MP000050

PATIENT
  Age: 86 Year
  Sex: Male
  Weight: 64.4108 kg

DRUGS (14)
  1. DACOGEN [Suspect]
     Indication: ACUTE MYELOID LEUKAEMIA
     Dosage: QD/IV
     Route: 042
     Dates: end: 20070130
  2. DACOGEN [Suspect]
     Indication: ANAEMIA
     Dosage: QD/IV
     Route: 042
     Dates: end: 20070130
  3. DACOGEN [Suspect]
     Indication: MYELODYSPLASTIC SYNDROME
     Dosage: QD/IV
     Route: 042
     Dates: end: 20070130
  4. DACOGEN [Suspect]
     Indication: ACUTE MYELOID LEUKAEMIA
     Dosage: QD/IV
     Route: 042
  5. DACOGEN [Suspect]
     Indication: ANAEMIA
     Dosage: QD/IV
     Route: 042
  6. DACOGEN [Suspect]
     Indication: MYELODYSPLASTIC SYNDROME
     Dosage: QD/IV
     Route: 042
  7. ARANESP [Suspect]
     Indication: MYELODYSPLASTIC SYNDROME
     Dosage: QOW
     Dates: start: 20061001
  8. ASPIRIN [Concomitant]
  9. ZOCOR [Concomitant]
  10. FUROSEMIDE [Concomitant]
  11. AVAPRO [Concomitant]
  12. PROPFOL [Concomitant]
  13. PEPCID [Concomitant]
  14. ZOSYN [Concomitant]

REACTIONS (6)
  - ACUTE PULMONARY OEDEMA [None]
  - CARDIAC ARREST [None]
  - CONSTIPATION [None]
  - HYPOXIA [None]
  - REFUSAL OF TREATMENT BY RELATIVE [None]
  - RESPIRATORY FAILURE [None]
